FAERS Safety Report 7409016-4 (Version None)
Quarter: 2011Q2

REPORT INFORMATION
  Report Type: 
  Country: None (occurrence: None)
  Receive Date: 20110412
  Receipt Date: 20110407
  Transmission Date: 20111010
  Serious: Yes (Disabling, Other)
  Sender: FDA-Public Use
  Company Number: US-PFIZER INC-2011016779

PATIENT
  Sex: Male
  Weight: 79.819 kg

DRUGS (4)
  1. XALATAN [Suspect]
     Indication: GLAUCOMA
     Dosage: UNK
     Route: 047
     Dates: start: 20060101
  2. ENALAPRIL [Concomitant]
     Indication: HYPERTENSION
     Dosage: 10 MG, UNK
  3. XAL-EASE [Concomitant]
     Dosage: UNK
  4. BRIMONIDINE [Suspect]
     Indication: EYE DISORDER
     Dosage: UNK
     Route: 047

REACTIONS (4)
  - VISUAL ACUITY REDUCED [None]
  - OPTIC NERVE INJURY [None]
  - PROSTATE CANCER [None]
  - CORNEAL TRANSPLANT [None]
